FAERS Safety Report 9958654 (Version 1)
Quarter: 2014Q1

REPORT INFORMATION
  Report Type: Spontaneous
  Country: US (occurrence: None)
  Receive Date: 20140228
  Receipt Date: 20140228
  Transmission Date: 20141002
  Serious: No
  Sender: FDA-Public Use
  Company Number: None

PATIENT
  Age: 48 Year
  Sex: Female
  Weight: 63.5 kg

DRUGS (9)
  1. LATUDA 60MG SUNOVION [Suspect]
     Indication: PRODUCT USED FOR UNKNOWN INDICATION
     Route: 048
     Dates: start: 20140116, end: 20140214
  2. ABILIFY [Concomitant]
  3. TOPAMAX [Concomitant]
  4. KLONOPIN [Concomitant]
  5. VISTERIL [Concomitant]
  6. MORPHINE SULFATE [Concomitant]
  7. HYDROXYZINE [Concomitant]
  8. VITAMIN D [Concomitant]
  9. OXYCODONE [Concomitant]

REACTIONS (11)
  - Tremor [None]
  - Tremor [None]
  - Confusional state [None]
  - Aphasia [None]
  - Nightmare [None]
  - Agitation [None]
  - Tremor [None]
  - Feeling abnormal [None]
  - Migraine [None]
  - Drug withdrawal syndrome [None]
  - Dystonia [None]
